FAERS Safety Report 6716222-0 (Version None)
Quarter: 2010Q2

REPORT INFORMATION
  Report Type: 
  Country: None (occurrence: None)
  Receive Date: 20100506
  Receipt Date: 20100506
  Transmission Date: 20101027
  Serious: No
  Sender: FDA-Public Use
  Company Number: None

PATIENT
  Sex: Female
  Weight: 9.9791 kg

DRUGS (1)
  1. SINGULAIR [Suspect]
     Indication: MULTIPLE ALLERGIES
     Dosage: 4MG ONCE DAILY PO
     Route: 048
     Dates: start: 20091229, end: 20100420

REACTIONS (2)
  - ABNORMAL BEHAVIOUR [None]
  - DEPRESSED MOOD [None]
